FAERS Safety Report 5925444-8 (Version None)
Quarter: 2008Q4

REPORT INFORMATION
  Report Type: 
  Country: None (occurrence: None)
  Receive Date: 20081015
  Receipt Date: 20081008
  Transmission Date: 20090506
  Serious: Yes (Death, Hospitalization)
  Sender: FDA-Public Use
  Company Number: RENA-1000217

PATIENT
  Age: 50 Year
  Sex: Female
  Weight: 52 kg

DRUGS (15)
  1. RENAGEL [Suspect]
     Indication: HYPERPHOSPHATAEMIA
     Dosage: 4000 MG, QD, ORAL
     Route: 048
     Dates: start: 20041015, end: 20080725
  2. MAGNESIUM (MAGNESIUM CARBONATE) [Suspect]
     Indication: DRUG USE FOR UNKNOWN INDICATION
     Dosage: 235 MG, TID
  3. OPIATE [Concomitant]
  4. PREDNISOLONE [Concomitant]
  5. ATACAND (CANDESARTAN CILEXETIL, HYDROCHLOROTHIAZIDE) [Concomitant]
  6. DECOSTRIOL (CALCITRIOL) [Concomitant]
  7. CALCIUMACETAT [Concomitant]
  8. VITARENAL (ASCORBIC ACID, BIOTIN, CALCIUM PANTOTHENATE, FOLIC ACID, NI [Concomitant]
  9. HEXAL (HEXACHLOROPHENE) [Concomitant]
  10. JURNISTA [Concomitant]
  11. MCP AL (METOCLOPRAMIDE HYDROCHLORIDE) [Concomitant]
  12. PANTOPRAZOLE SODIUM [Concomitant]
  13. VOLTAREN [Concomitant]
  14. FERRLECIT (THIAMINE MONONITRATE) [Concomitant]
  15. NEORECORMON (EPOETIN BETA) [Concomitant]

REACTIONS (6)
  - ACUTE ABDOMEN [None]
  - FAECALITH [None]
  - ILEUS PARALYTIC [None]
  - INTESTINAL PERFORATION [None]
  - PERITONITIS [None]
  - SEPSIS [None]
